FAERS Safety Report 19459976 (Version 1)
Quarter: 2021Q2

REPORT INFORMATION
  Report Type: Spontaneous
  Country: GB (occurrence: GB)
  Receive Date: 20210625
  Receipt Date: 20210625
  Transmission Date: 20210717
  Serious: Yes (Other)
  Sender: FDA-Public Use
  Company Number: GB-SUN PHARMACEUTICAL INDUSTRIES LTD-2021RR-302050

PATIENT
  Age: 29 Year
  Sex: Female

DRUGS (5)
  1. PREDNISOLONE. [Suspect]
     Active Substance: PREDNISOLONE
     Indication: LINEAR IGA DISEASE
     Dosage: 60 MILLIGRAM, DAILY
     Route: 065
  2. DOXYCYCLINE. [Suspect]
     Active Substance: DOXYCYCLINE
     Indication: LINEAR IGA DISEASE
     Dosage: 100 MILLIGRAM, BID
     Route: 065
  3. DAPSONE. [Concomitant]
     Active Substance: DAPSONE
     Indication: LINEAR IGA DISEASE
     Dosage: 125 MILLIGRAM, DAILY
     Route: 065
  4. PREDNISOLONE. [Suspect]
     Active Substance: PREDNISOLONE
     Dosage: 10 MILLIGRAM, DAILY
     Route: 065
  5. SULFAPYRIDINE. [Concomitant]
     Active Substance: SULFAPYRIDINE
     Indication: LINEAR IGA DISEASE
     Dosage: } 500 MG TWICE DAILY
     Route: 065

REACTIONS (5)
  - Myopathy [Unknown]
  - Drug ineffective [Unknown]
  - Weight increased [Unknown]
  - Condition aggravated [Unknown]
  - Cataract [Unknown]
